FAERS Safety Report 17926831 (Version 1)
Quarter: 2020Q2

REPORT INFORMATION
  Report Type: Spontaneous
  Country: DE (occurrence: DE)
  Receive Date: 20200622
  Receipt Date: 20200622
  Transmission Date: 20200714
  Serious: Yes (Hospitalization)
  Sender: FDA-Public Use
  Company Number: DE-TEVA-2020-DE-1790845

PATIENT
  Age: 54 Year
  Sex: Female

DRUGS (1)
  1. COPAXONE [Suspect]
     Active Substance: GLATIRAMER ACETATE
     Indication: MULTIPLE SCLEROSIS
     Dates: start: 20200518, end: 20200527

REACTIONS (6)
  - Vomiting [Recovered/Resolved]
  - Injection site erythema [Recovering/Resolving]
  - Diarrhoea [Recovered/Resolved]
  - Gastroenteritis viral [Unknown]
  - Injection site inflammation [Recovering/Resolving]
  - Drug intolerance [Unknown]

NARRATIVE: CASE EVENT DATE: 20200518
